FAERS Safety Report 22037468 (Version 1)
Quarter: 2023Q1

REPORT INFORMATION
  Report Type: Spontaneous
  Country: ES (occurrence: ES)
  Receive Date: 20230226
  Receipt Date: 20230226
  Transmission Date: 20230418
  Serious: Yes (Other)
  Sender: FDA-Public Use
  Company Number: ES-JNJFOC-20230224995

PATIENT
  Sex: Male
  Weight: 100 kg

DRUGS (27)
  1. CARFILZOMIB [Suspect]
     Active Substance: CARFILZOMIB
     Indication: Plasma cell myeloma
     Dosage: AS APART OF CARTBCMA-HCB-01
     Route: 065
     Dates: start: 202001
  2. CYCLOPHOSPHAMIDE [Suspect]
     Active Substance: CYCLOPHOSPHAMIDE
     Indication: Plasma cell myeloma
     Dosage: LOADING DOSE REGIMEN
     Route: 065
     Dates: start: 202011
  3. CYCLOPHOSPHAMIDE [Suspect]
     Active Substance: CYCLOPHOSPHAMIDE
     Dosage: UNK
     Route: 065
     Dates: start: 201701
  4. CYCLOPHOSPHAMIDE [Suspect]
     Active Substance: CYCLOPHOSPHAMIDE
     Dosage: LOADING DOSE REGIMEN
     Route: 065
     Dates: start: 202012
  5. SELINEXOR [Suspect]
     Active Substance: SELINEXOR
     Indication: Plasma cell myeloma
     Dosage: AS A PART OF EC GEM SELIBORDARA
     Route: 065
     Dates: start: 201811
  6. DARZALEX [Suspect]
     Active Substance: DARATUMUMAB
     Indication: Plasma cell myeloma
     Dosage: AS A PART OF EC GEM SELIBORDARA
     Route: 065
     Dates: start: 201811
  7. VELCADE [Suspect]
     Active Substance: BORTEZOMIB
     Indication: Plasma cell myeloma
     Dosage: AS A PART OF ECAPL-B022-15
     Route: 065
     Dates: start: 201801
  8. VELCADE [Suspect]
     Active Substance: BORTEZOMIB
     Dosage: EC GEM SELIBORDARA
     Route: 065
     Dates: start: 201811
  9. VELCADE [Suspect]
     Active Substance: BORTEZOMIB
     Dosage: 8 CYCLES
     Route: 065
  10. VINCRISTINE [Suspect]
     Active Substance: VINCRISTINE
     Indication: Plasma cell myeloma
     Dosage: 3 CYCLES
     Route: 065
  11. FLUDARABINE [Suspect]
     Active Substance: FLUDARABINE PHOSPHATE
     Indication: Plasma cell myeloma
     Dosage: UNK
     Route: 065
     Dates: start: 202012
  12. FLUDARABINE [Suspect]
     Active Substance: FLUDARABINE PHOSPHATE
     Dosage: LOADING DOSE REGIMEN
     Route: 065
     Dates: start: 202011
  13. POMALIDOMIDE [Suspect]
     Active Substance: POMALIDOMIDE
     Indication: Plasma cell myeloma
     Dosage: UNK
     Route: 065
     Dates: start: 201701
  14. DEXAMETHASONE [Suspect]
     Active Substance: DEXAMETHASONE
     Indication: Plasma cell myeloma
     Dosage: 3 CYCLES
     Route: 065
  15. DEXAMETHASONE [Suspect]
     Active Substance: DEXAMETHASONE
     Dosage: UNK
     Route: 065
  16. DEXAMETHASONE [Suspect]
     Active Substance: DEXAMETHASONE
     Dosage: 8 CYCLES
     Route: 065
  17. DEXAMETHASONE [Suspect]
     Active Substance: DEXAMETHASONE
     Dosage: AS A PART OF EC APL-B022-15
     Route: 065
     Dates: start: 201801
  18. DEXAMETHASONE [Suspect]
     Active Substance: DEXAMETHASONE
     Dosage: AS APART OF CARTBCMA-HCB-01
     Route: 065
     Dates: start: 202001
  19. DEXAMETHASONE [Suspect]
     Active Substance: DEXAMETHASONE
     Dosage: UNK
     Route: 065
     Dates: start: 201701
  20. DEXAMETHASONE [Suspect]
     Active Substance: DEXAMETHASONE
     Dosage: AS A PART OF RD
     Route: 065
     Dates: start: 201604, end: 201611
  21. LORAZEPAM [Concomitant]
     Active Substance: LORAZEPAM
     Dosage: UNK
  22. DOXORUBICIN HYDROCHLORIDE [Suspect]
     Active Substance: DOXORUBICIN HYDROCHLORIDE
     Indication: Plasma cell myeloma
     Dosage: 3 CYCLES
     Route: 065
  23. REVLIMID [Suspect]
     Active Substance: LENALIDOMIDE
     Indication: Plasma cell myeloma
     Dosage: AS A PART OF RD
     Route: 065
     Dates: start: 201604, end: 201611
  24. Magnogene [Concomitant]
     Dosage: UNK
  25. LOSARTAN [Concomitant]
     Active Substance: LOSARTAN
     Dosage: UNK
  26. BISOPROLOL [Concomitant]
     Active Substance: BISOPROLOL
     Dosage: UNK
  27. CALCIFEDIOL [Concomitant]
     Active Substance: CALCIFEDIOL
     Dosage: UNK

REACTIONS (3)
  - Plasma cell myeloma [Unknown]
  - Plasma cell myeloma refractory [Unknown]
  - Intentional product use issue [Unknown]
